FAERS Safety Report 5162950-0 (Version None)
Quarter: 2006Q4

REPORT INFORMATION
  Report Type: 
  Country: None (occurrence: None)
  Receive Date: 20061201
  Receipt Date: 20061120
  Transmission Date: 20070319
  Serious: Yes (Death, Hospitalization)
  Sender: FDA-Public Use
  Company Number: FR-BRISTOL-MYERS SQUIBB COMPANY-13587605

PATIENT
  Age: 55 Year
  Sex: Male

DRUGS (6)
  1. VASTEN TABS 10 MG [Suspect]
     Route: 048
     Dates: start: 20060914, end: 20060927
  2. RIFADIN [Suspect]
     Dates: start: 20060914, end: 20060925
  3. CLAMOXYL [Suspect]
     Route: 048
     Dates: start: 20060915, end: 20060925
  4. NEURONTIN [Suspect]
     Route: 048
     Dates: start: 20060916, end: 20060927
  5. AMOXICILLIN [Concomitant]
     Dates: end: 20060925
  6. GABAPENTIN [Concomitant]
     Dates: end: 20060927

REACTIONS (5)
  - AGRANULOCYTOSIS [None]
  - ANAEMIA [None]
  - CARDIO-RESPIRATORY ARREST [None]
  - FEBRILE NEUTROPENIA [None]
  - PLATELET COUNT DECREASED [None]
